FAERS Safety Report 23646379 (Version 5)
Quarter: 2024Q3

REPORT INFORMATION
  Report Type: Spontaneous
  Country: CA (occurrence: CA)
  Receive Date: 20240319
  Receipt Date: 20240709
  Transmission Date: 20241017
  Serious: Yes (Other)
  Sender: TAKEDA
  Company Number: CA-TAKEDA-2024TUS014433

PATIENT
  Age: 73 Year
  Sex: Female

DRUGS (4)
  1. ENTYVIO [Suspect]
     Active Substance: VEDOLIZUMAB
     Indication: Crohn^s disease
     Dosage: 300 MILLIGRAM, Q4WEEKS
     Route: 042
     Dates: start: 20230403
  2. ENTYVIO [Suspect]
     Active Substance: VEDOLIZUMAB
     Dosage: 300 MILLIGRAM, Q4WEEKS
     Route: 042
  3. ENTYVIO [Suspect]
     Active Substance: VEDOLIZUMAB
     Dosage: 300 MILLIGRAM, Q4WEEKS
     Route: 042
  4. ENTOCORT [Suspect]
     Active Substance: BUDESONIDE
     Indication: Crohn^s disease
     Dosage: UNK UNK, TID
     Route: 048
     Dates: start: 20240318

REACTIONS (6)
  - Crohn^s disease [Not Recovered/Not Resolved]
  - Intestinal obstruction [Recovered/Resolved]
  - Rectal abscess [Recovered/Resolved]
  - Rash papular [Recovering/Resolving]
  - Psoriasis [Not Recovered/Not Resolved]
  - Off label use [Unknown]

NARRATIVE: CASE EVENT DATE: 20230403
